FAERS Safety Report 5672173-4 (Version None)
Quarter: 2008Q1

REPORT INFORMATION
  Report Type: 
  Country: None (occurrence: None)
  Receive Date: 20080319
  Receipt Date: 20080312
  Transmission Date: 20080703
  Serious: Yes (Other)
  Sender: FDA-Public Use
  Company Number: JP-NOVOPROD-273115

PATIENT
  Age: 16 Year
  Sex: Male
  Weight: 58 kg

DRUGS (2)
  1. LEVEMIR [Suspect]
     Indication: TYPE 1 DIABETES MELLITUS
     Dosage: 28 IU, UNK
     Route: 058
     Dates: start: 20080101
  2. NOVORAPID CHU FLEXPEN [Concomitant]
     Indication: TYPE 1 DIABETES MELLITUS
     Dosage: 24 IU, UNK
     Route: 058
     Dates: start: 20050101

REACTIONS (2)
  - BLOOD CREATINE PHOSPHOKINASE INCREASED [None]
  - MUSCLE SPASMS [None]
